FAERS Safety Report 11746027 (Version 1)
Quarter: 2015Q4

REPORT INFORMATION
  Report Type: Spontaneous
  Country: US (occurrence: US)
  Receive Date: 20151117
  Receipt Date: 20151117
  Transmission Date: 20160304
  Serious: No
  Sender: FDA-Public Use
  Company Number: US-PFIZER INC-2015387619

PATIENT
  Sex: Female

DRUGS (2)
  1. MINIPRESS [Suspect]
     Active Substance: PRAZOSIN HYDROCHLORIDE
  2. BENICAR [Suspect]
     Active Substance: OLMESARTAN MEDOXOMIL

REACTIONS (1)
  - Drug hypersensitivity [Unknown]
